FAERS Safety Report 7771395-6 (Version None)
Quarter: 2011Q3

REPORT INFORMATION
  Report Type: 
  Country: None (occurrence: None)
  Receive Date: 20110922
  Receipt Date: 20100914
  Transmission Date: 20111222
  Serious: Yes (Other)
  Sender: FDA-Public Use
  Company Number: US-ASTRAZENECA-2007UW05474

PATIENT
  Age: 14213 Day
  Sex: Female
  Weight: 91.6 kg

DRUGS (4)
  1. SEROQUEL [Suspect]
     Dosage: 25-400 MG
     Route: 048
     Dates: start: 20040331, end: 20060812
  2. SEROQUEL [Suspect]
     Dosage: 25-400 MG
     Route: 048
     Dates: start: 20040331, end: 20060812
  3. SEROQUEL [Suspect]
     Indication: ANXIETY
     Dosage: 25-400 MG
     Route: 048
     Dates: start: 20010829, end: 20040907
  4. SEROQUEL [Suspect]
     Indication: SLEEP DISORDER
     Dosage: 25-400 MG
     Route: 048
     Dates: start: 20010829, end: 20040907

REACTIONS (16)
  - DIZZINESS [None]
  - PAIN IN EXTREMITY [None]
  - NEPHROLITHIASIS [None]
  - FOOT DEFORMITY [None]
  - GLAUCOMA [None]
  - DRUG INEFFECTIVE [None]
  - DIABETES MELLITUS INADEQUATE CONTROL [None]
  - EXOSTOSIS [None]
  - KIDNEY INFECTION [None]
  - URINARY INCONTINENCE [None]
  - LACERATION [None]
  - TYPE 2 DIABETES MELLITUS [None]
  - TOOTH DISORDER [None]
  - HEADACHE [None]
  - PLANTAR FASCIITIS [None]
  - ABDOMINAL PAIN [None]
